FAERS Safety Report 7513487-2 (Version None)
Quarter: 2011Q2

REPORT INFORMATION
  Report Type: 
  Country: None (occurrence: None)
  Receive Date: 20110531
  Receipt Date: 20110519
  Transmission Date: 20111010
  Serious: Yes (Hospitalization, Other)
  Sender: FDA-Public Use
  Company Number: US-BAYER-201038361NA

PATIENT
  Age: 19 Year
  Sex: Female
  Weight: 65.76 kg

DRUGS (7)
  1. AMOXICILLIN [Concomitant]
     Dosage: 500 MG
  2. IBUPROFEN [Concomitant]
  3. PREVACID [Concomitant]
     Dosage: 30 MG DAILY
  4. YASMIN [Suspect]
     Indication: ACNE
     Dosage: UNK
     Dates: start: 20020101, end: 20090101
  5. SINGULAIR [Concomitant]
     Dosage: 10 MG
  6. DICYCLOMINE [Concomitant]
     Dosage: 20 MG
  7. ALBUTEROL SULFATE AUTOHALER [Concomitant]
     Dosage: UNK UNK, PRN

REACTIONS (4)
  - GASTROOESOPHAGEAL REFLUX DISEASE [None]
  - BILIARY DYSKINESIA [None]
  - IRRITABLE BOWEL SYNDROME [None]
  - GALLBLADDER DISORDER [None]
